FAERS Safety Report 15762193 (Version 1)
Quarter: 2018Q4

REPORT INFORMATION
  Report Type: Spontaneous
  Country: CA (occurrence: CA)
  Receive Date: 20181226
  Receipt Date: 20181226
  Transmission Date: 20190205
  Serious: Yes (Other)
  Sender: FDA-Public Use
  Company Number: CA-ASTRAZENECA-2018SF70425

PATIENT
  Sex: Female

DRUGS (5)
  1. ARIMIDEX [Suspect]
     Active Substance: ANASTROZOLE
     Route: 048
     Dates: end: 201706
  2. LETROZOLE. [Concomitant]
     Active Substance: LETROZOLE
     Dosage: 75.0MG UNKNOWN
     Dates: start: 20181213
  3. XGEVA [Concomitant]
     Active Substance: DENOSUMAB
     Dosage: 75.0MG UNKNOWN
     Dates: start: 20181213
  4. IBRANCE [Suspect]
     Active Substance: PALBOCICLIB
     Indication: BREAST CANCER
     Dosage: 75.0MG UNKNOWN
     Route: 048
     Dates: start: 20181213
  5. FULVESTRANT. [Suspect]
     Active Substance: FULVESTRANT
     Indication: BREAST CANCER
     Dosage: 75.0MG UNKNOWN
     Route: 030
     Dates: start: 20181213

REACTIONS (5)
  - Skin mass [Unknown]
  - Metastases to bone [Unknown]
  - Malignant neoplasm progression [Unknown]
  - Drug intolerance [Unknown]
  - Breast cancer metastatic [Unknown]
